FAERS Safety Report 24198533 (Version 1)
Quarter: 2024Q3

REPORT INFORMATION
  Report Type: Report from Study
  Country: JP (occurrence: JP)
  Receive Date: 20240812
  Receipt Date: 20240812
  Transmission Date: 20241017
  Serious: Yes (Other)
  Sender: ROCHE
  Company Number: JP-ROCHE-10000049151

PATIENT

DRUGS (9)
  1. RITUXIMAB [Suspect]
     Active Substance: RITUXIMAB
     Indication: Prophylaxis against transplant rejection
     Route: 042
  2. MYCOPHENOLATE MOFETIL [Suspect]
     Active Substance: MYCOPHENOLATE MOFETIL
     Indication: Prophylaxis against transplant rejection
     Route: 065
  3. TACROLIMUS [Suspect]
     Active Substance: TACROLIMUS
     Indication: Prophylaxis against transplant rejection
     Route: 065
     Dates: start: 1990
  4. TACROLIMUS [Suspect]
     Active Substance: TACROLIMUS
     Route: 065
     Dates: start: 2006
  5. CYCLOSPORINE [Suspect]
     Active Substance: CYCLOSPORINE
     Indication: Prophylaxis against transplant rejection
     Route: 065
     Dates: start: 1990
  6. AZATHIOPRINE [Suspect]
     Active Substance: AZATHIOPRINE
     Indication: Prophylaxis against transplant rejection
     Route: 065
     Dates: start: 1990, end: 2005
  7. MUROMONAB-CD3 [Suspect]
     Active Substance: MUROMONAB-CD3
     Indication: Prophylaxis against transplant rejection
     Route: 065
     Dates: start: 1990, end: 2005
  8. CYCLOPHOSPHAMIDE [Suspect]
     Active Substance: CYCLOPHOSPHAMIDE
     Indication: Prophylaxis against transplant rejection
     Route: 065
  9. EVEROLIMUS [Suspect]
     Active Substance: EVEROLIMUS
     Indication: Prophylaxis against transplant rejection
     Route: 065

REACTIONS (15)
  - Colorectal cancer [Unknown]
  - Lung neoplasm malignant [Unknown]
  - Gastric cancer [Unknown]
  - Breast cancer [Unknown]
  - Prostate cancer [Unknown]
  - Oesophageal carcinoma [Unknown]
  - Neoplasm malignant [Unknown]
  - Uterine cancer [Unknown]
  - Thyroid cancer [Unknown]
  - Skin cancer [Unknown]
  - Pancreatic carcinoma [Unknown]
  - Bile duct cancer [Unknown]
  - Brain neoplasm [Unknown]
  - Renal cancer [Unknown]
  - Post transplant lymphoproliferative disorder [Unknown]
